FAERS Safety Report 9513393 (Version 1)
Quarter: 2013Q1

REPORT INFORMATION
  Report Type: Spontaneous
  Country: US (occurrence: None)
  Receive Date: 20130305
  Receipt Date: 20130305
  Transmission Date: 20140127
  Serious: Yes (Other)
  Sender: FDA-Public Use
  Company Number: 163-21880-12110084

PATIENT
  Age: 62 Year
  Sex: Female

DRUGS (9)
  1. REVLIMID [Suspect]
     Indication: PLASMA CELL MYELOMA
     Dosage: 10 MG, 21 IN 21 D, PO
     Route: 048
     Dates: start: 20101117
  2. ASA (ACETYSALICYLIC ACID) (UNKNOWN) [Concomitant]
  3. CALCIUM D (OS-CAL) (UNKNOWN) [Concomitant]
  4. FAMOTIDINE (FAMOTIDINE) (UNKNOWN) [Concomitant]
  5. METOROLOL (METOPROLOL) (UNKNOWN) [Concomitant]
  6. PLAVIX (CLOPIDOGREL SULFATE) (UNKNOWN) [Concomitant]
  7. PROCHLORPERAZINE (PROCHLORPERAZINE) (UNKNOWN) [Concomitant]
  8. SIMVASTATIN [Concomitant]
  9. CLIMARA (ESTRADIOL) (UNKNOWN) [Concomitant]

REACTIONS (1)
  - Sinus disorder [None]
